FAERS Safety Report 16460712 (Version 2)
Quarter: 2019Q3

REPORT INFORMATION
  Report Type: Spontaneous
  Country: US (occurrence: US)
  Receive Date: 20190620
  Receipt Date: 20190718
  Transmission Date: 20191004
  Serious: No
  Sender: FDA-Public Use
  Company Number: PHHY2019US138616

PATIENT

DRUGS (1)
  1. ZADITOR [Suspect]
     Active Substance: KETOTIFEN FUMARATE
     Indication: PRODUCT USED FOR UNKNOWN INDICATION
     Dosage: RECEIVED IN BOTH EYES (OU)
     Route: 065

REACTIONS (3)
  - Product quality issue [Unknown]
  - Erythema of eyelid [Unknown]
  - Eyelid skin dryness [Unknown]
